FAERS Safety Report 25248760 (Version 1)
Quarter: 2025Q2

REPORT INFORMATION
  Report Type: Spontaneous
  Country: US (occurrence: US)
  Receive Date: 20250429
  Receipt Date: 20250429
  Transmission Date: 20250716
  Serious: Yes (Death, Other)
  Sender: ZYDUS PHARM
  Company Number: US-CADILA HEALTHCARE LIMITED-US-ZYDUS-122321

PATIENT

DRUGS (5)
  1. DOXORUBICIN [Suspect]
     Active Substance: DOXORUBICIN
     Indication: Hodgkin^s disease
     Route: 065
  2. BLEOMYCIN [Suspect]
     Active Substance: BLEOMYCIN SULFATE
     Indication: Hodgkin^s disease
     Route: 065
  3. PROCARBAZINE [Suspect]
     Active Substance: PROCARBAZINE
     Indication: Hodgkin^s disease
     Route: 065
  4. VINCRISTINE [Suspect]
     Active Substance: VINCRISTINE
     Indication: Hodgkin^s disease
     Route: 065
  5. AMIODARONE [Concomitant]
     Active Substance: AMIODARONE
     Indication: Atrial fibrillation
     Route: 065

REACTIONS (3)
  - Klebsiella bacteraemia [Fatal]
  - Neutropenic colitis [Fatal]
  - Septic shock [Fatal]
